FAERS Safety Report 5965932-1 (Version None)
Quarter: 2008Q4

REPORT INFORMATION
  Report Type: 
  Country: None (occurrence: None)
  Receive Date: 20081121
  Receipt Date: 20081121
  Transmission Date: 20090506
  Serious: No
  Sender: FDA-Public Use
  Company Number: None

PATIENT
  Age: 64 Year
  Sex: Male
  Weight: 103.64 kg

DRUGS (1)
  1. RANOLAZINE [Suspect]
     Dosage: 500 MG BID PO
     Route: 048
     Dates: start: 20080527, end: 20081024

REACTIONS (3)
  - ABDOMINAL DISTENSION [None]
  - ANOREXIA [None]
  - NAUSEA [None]
